FAERS Safety Report 20602088 (Version 3)
Quarter: 2022Q2

REPORT INFORMATION
  Report Type: Spontaneous
  Country: US (occurrence: None)
  Receive Date: 20220316
  Receipt Date: 20220419
  Transmission Date: 20220721
  Serious: Yes (Death)
  Sender: FDA-Public Use
  Company Number: US-ROCHE-3050422

PATIENT
  Sex: Female

DRUGS (11)
  1. RITUXAN [Suspect]
     Active Substance: RITUXIMAB
     Indication: Rheumatoid arthritis
     Dosage: ON DAY 0 AND THEN DAY 15 EVERY 4-5 MONTHS
     Route: 042
     Dates: start: 20160329
  2. RITUXAN [Suspect]
     Active Substance: RITUXIMAB
     Dosage: 50 ML SDV INJECTION, INFUSE 1000 MG IV ON DAY 0, THEN DAY 15 EVERY 4-6 ONTHS.
     Route: 041
     Dates: start: 20171004
  3. AMLODIPINE BESYLATE [Concomitant]
     Active Substance: AMLODIPINE BESYLATE
  4. CLOPIDOGREL [Concomitant]
     Active Substance: CLOPIDOGREL BISULFATE
  5. CARVEDILOL [Concomitant]
     Active Substance: CARVEDILOL
  6. FOLIC ACID [Concomitant]
     Active Substance: FOLIC ACID
  7. LEVOTHYROXINE [Concomitant]
     Active Substance: LEVOTHYROXINE
  8. LOSARTAN POTASSIUM [Concomitant]
     Active Substance: LOSARTAN POTASSIUM
  9. METAXALONE [Concomitant]
     Active Substance: METAXALONE
  10. METHOTREXATE [Concomitant]
     Active Substance: METHOTREXATE
  11. WELCHOL [Concomitant]
     Active Substance: COLESEVELAM HYDROCHLORIDE

REACTIONS (1)
  - COVID-19 [Fatal]
